FAERS Safety Report 23147507 (Version 7)
Quarter: 2024Q1

REPORT INFORMATION
  Report Type: Spontaneous
  Country: US (occurrence: US)
  Receive Date: 20231106
  Receipt Date: 20240312
  Transmission Date: 20240410
  Serious: No
  Sender: FDA-Public Use
  Company Number: US-BRISTOL-MYERS SQUIBB COMPANY-2023-157889

PATIENT
  Age: 67 Year
  Sex: Female

DRUGS (1)
  1. REVLIMID [Suspect]
     Active Substance: LENALIDOMIDE
     Indication: Follicular lymphoma
     Route: 048

REACTIONS (6)
  - Fatigue [Unknown]
  - Dizziness [Unknown]
  - Constipation [Unknown]
  - Dry mouth [Unknown]
  - Tremor [Unknown]
  - Rash [Unknown]
